FAERS Safety Report 9785867 (Version 1)
Quarter: 2013Q4

REPORT INFORMATION
  Report Type: Spontaneous
  Country: IE (occurrence: None)
  Receive Date: 20131224
  Receipt Date: 20131224
  Transmission Date: 20140711
  Serious: Yes (Other)
  Sender: FDA-Public Use
  Company Number: IE-013764

PATIENT
  Age: 16 Year
  Sex: Male

DRUGS (2)
  1. ZOMACTON [Suspect]
     Indication: PRODUCT USED FOR UNKNOWN INDICATION
  2. FLUOXETINE [Suspect]
     Indication: MENTAL DISORDER

REACTIONS (5)
  - Personality disorder [None]
  - Drug interaction [None]
  - Suicidal ideation [None]
  - Mental disorder [None]
  - Condition aggravated [None]
